FAERS Safety Report 7221680-1 (Version None)
Quarter: 2011Q1

REPORT INFORMATION
  Report Type: 
  Country: None (occurrence: None)
  Receive Date: 20110112
  Receipt Date: 20110104
  Transmission Date: 20110831
  Serious: Yes (Other)
  Sender: FDA-Public Use
  Company Number: US-SANOFI-AVENTIS-2010SA077873

PATIENT
  Sex: Male

DRUGS (1)
  1. LOVENOX [Suspect]
     Indication: THROMBOSIS PROPHYLAXIS
     Route: 065
     Dates: start: 20050101

REACTIONS (6)
  - PRODUCT QUALITY ISSUE [None]
  - TOOTH DISORDER [None]
  - OPERATIVE HAEMORRHAGE [None]
  - PAIN IN EXTREMITY [None]
  - HERNIA [None]
  - INJECTION SITE SWELLING [None]
